FAERS Safety Report 10592370 (Version 1)
Quarter: 2014Q4

REPORT INFORMATION
  Report Type: Spontaneous
  Country: US (occurrence: US)
  Receive Date: 20141119
  Receipt Date: 20141119
  Transmission Date: 20150529
  Serious: Yes (Other)
  Sender: FDA-Public Use
  Company Number: US-CIPLA LTD.-2014US01921

PATIENT
  Sex: Female

DRUGS (3)
  1. PACLITAXEL. [Suspect]
     Active Substance: PACLITAXEL
     Indication: OVARIAN CLEAR CELL CARCINOMA
     Dosage: UNK
  2. RADIOTHERAPY [Suspect]
     Active Substance: RADIATION THERAPY
     Indication: OVARIAN CLEAR CELL CARCINOMA
     Dosage: UNK
  3. CARBOPLATIN. [Suspect]
     Active Substance: CARBOPLATIN
     Indication: OVARIAN CLEAR CELL CARCINOMA
     Dosage: UNK

REACTIONS (2)
  - Small intestinal obstruction [Unknown]
  - Enteritis [Unknown]
